FAERS Safety Report 9169170 (Version 3)
Quarter: 2014Q2

REPORT INFORMATION
  Report Type: Spontaneous
  Country: DK (occurrence: DK)
  Receive Date: 20130318
  Receipt Date: 20140425
  Transmission Date: 20141212
  Serious: Yes (Death, Hospitalization, Other)
  Sender: FDA-Public Use
  Company Number: DK-TEVA-390616ISR

PATIENT
  Age: 7 Year
  Sex: Male
  Weight: 25.7 kg

DRUGS (7)
  1. METHOTREXATE [Suspect]
     Indication: UVEITIS
     Dosage: DOSE: 7.5 MG WEEKLY
     Route: 048
     Dates: start: 20101110
  2. REMICADE [Suspect]
     Indication: UVEITIS
     Dosage: DOSAGE: 125 MG EVERY 4TH WEEK I.V., STRENGTH: 100 MG
     Route: 042
     Dates: start: 20101027, end: 20110204
  3. MYDRIACYL [Concomitant]
     Indication: UVEITIS
     Dosage: 6 DOSAGE FORMS DAILY; DOSAGE: 0.5%, 3 TIMES DAILY IN BOTH EYES
     Route: 050
     Dates: start: 20100427, end: 20110309
  4. COSOPT [Concomitant]
     Indication: GLAUCOMA
     Dosage: 4 DOSAGE FORMS DAILY; DOSAGE: 1 DROP TWICE DAILY IN BOTH EYES
     Route: 050
     Dates: start: 20110110, end: 20110309
  5. COSOPT [Concomitant]
     Indication: GLAUCOMA
  6. XALATAN [Concomitant]
     Indication: UVEITIS
     Dosage: 2 DOSAGE FORMS DAILY; DOSAGE: 1 DROP ONCE DAILY IN BOTH EYES
     Route: 050
     Dates: start: 20100427, end: 20110309
  7. XALATAN [Concomitant]
     Indication: GLAUCOMA

REACTIONS (5)
  - Varicella zoster pneumonia [Fatal]
  - Encephalitis [Fatal]
  - Varicella [Fatal]
  - Respiratory failure [Fatal]
  - Disseminated intravascular coagulation [Unknown]
